FAERS Safety Report 8501023-3 (Version None)
Quarter: 2012Q2

REPORT INFORMATION
  Report Type: 
  Country: None (occurrence: None)
  Receive Date: 20120405
  Receipt Date: 20110210
  Transmission Date: 20120825
  Serious: Yes (Hospitalization)
  Sender: FDA-Public Use
  Company Number: PHHY2011US11197

PATIENT

DRUGS (1)
  1. RECLAST [Suspect]
     Dosage: 5 MG, YEARLY, INTRAVENOUS
     Route: 042

REACTIONS (1)
  - RENAL FAILURE [None]
